FAERS Safety Report 18940081 (Version 5)
Quarter: 2021Q1

REPORT INFORMATION
  Report Type: Report from Study
  Country: US (occurrence: US)
  Receive Date: 20210225
  Receipt Date: 20210329
  Transmission Date: 20210420
  Serious: Yes (Hospitalization, Other)
  Sender: FDA-Public Use
  Company Number: US-BRISTOL-MYERS SQUIBB COMPANY-BMS-2021-017861

PATIENT
  Age: 72 Year
  Sex: Male
  Weight: 121.09 kg

DRUGS (5)
  1. ENOXAPARIN [Concomitant]
     Active Substance: ENOXAPARIN
     Indication: THROMBOSIS PROPHYLAXIS
     Dosage: 40 MILLIGRAM, QD
     Route: 058
     Dates: start: 20210217
  2. REMDESIVIR. [Concomitant]
     Active Substance: REMDESIVIR
     Dosage: 100 MILLIGRAM, QD (MAINTENANCE DOSE )
     Route: 042
     Dates: start: 20210128, end: 20210131
  3. CENICRIVIROC [Concomitant]
     Active Substance: CENICRIVIROC
     Indication: PRODUCT USED FOR UNKNOWN INDICATION
     Dosage: DOSES RECEIVED SINCE STUDY DAY 1: 0
     Route: 065
  4. ABATACEPT [Suspect]
     Active Substance: ABATACEPT
     Indication: COVID-19
     Dosage: 1000 MILLIGRAM
     Route: 065
     Dates: start: 20210127
  5. REMDESIVIR. [Concomitant]
     Active Substance: REMDESIVIR
     Indication: PRODUCT USED FOR UNKNOWN INDICATION
     Dosage: 200 MILLIGRAM, ONCE (LOADING DOSE)
     Route: 042
     Dates: start: 20210127

REACTIONS (1)
  - Scrotal abscess [Recovering/Resolving]

NARRATIVE: CASE EVENT DATE: 20210216
